FAERS Safety Report 5039258-7 (Version None)
Quarter: 2006Q2

REPORT INFORMATION
  Report Type: 
  Country: None (occurrence: None)
  Receive Date: 20060629
  Receipt Date: 20060621
  Transmission Date: 20061013
  Serious: Yes (Other)
  Sender: FDA-Public Use
  Company Number: DE-ROCHE-452442

PATIENT
  Age: 81 Year
  Sex: Female

DRUGS (1)
  1. XELODA [Suspect]
     Indication: BREAST CANCER
     Route: 048

REACTIONS (5)
  - DIARRHOEA HAEMORRHAGIC [None]
  - GASTROINTESTINAL OEDEMA [None]
  - INTESTINAL FISTULA [None]
  - LEUKOPENIA [None]
  - THROMBOCYTOPENIA [None]
